FAERS Safety Report 7519588-7 (Version None)
Quarter: 2011Q2

REPORT INFORMATION
  Report Type: 
  Country: None (occurrence: None)
  Receive Date: 20110602
  Receipt Date: 20110518
  Transmission Date: 20111010
  Serious: Yes (Hospitalization)
  Sender: FDA-Public Use
  Company Number: A0884281A

PATIENT
  Age: 9 Year
  Sex: Female
  Weight: 26.4 kg

DRUGS (3)
  1. LAMICTAL [Suspect]
     Dosage: 25MG IN THE MORNING
     Route: 048
     Dates: start: 20090813, end: 20090827
  2. FOCALIN [Concomitant]
     Dates: start: 20090813, end: 20090830
  3. CLONIDINE [Concomitant]
     Dates: start: 20090813, end: 20090830

REACTIONS (3)
  - STEVENS-JOHNSON SYNDROME [None]
  - SKIN HYPERPIGMENTATION [None]
  - DRUG HYPERSENSITIVITY [None]
